FAERS Safety Report 11169278 (Version 1)
Quarter: 2015Q2

REPORT INFORMATION
  Report Type: Spontaneous
  Country: US (occurrence: US)
  Receive Date: 20150605
  Receipt Date: 20150605
  Transmission Date: 20150821
  Serious: Yes (Other)
  Sender: FDA-Public Use
  Company Number: US-ASTRAZENECA-2015SE54536

PATIENT
  Sex: Male

DRUGS (1)
  1. NEXIUM 24HR [Suspect]
     Active Substance: ESOMEPRAZOLE MAGNESIUM
     Indication: GASTROOESOPHAGEAL REFLUX DISEASE
     Dosage: 1 DF, TWO TIMES A DAY, ONE IN THE AM AND OTHER AT NIGHT BEFORE BEDTIME
     Route: 048

REACTIONS (3)
  - Basilar artery thrombosis [Unknown]
  - Product used for unknown indication [Unknown]
  - Carotid artery thrombosis [Unknown]
